FAERS Safety Report 13024256 (Version 1)
Quarter: 2016Q4

REPORT INFORMATION
  Report Type: Spontaneous
  Country: US (occurrence: US)
  Receive Date: 20161213
  Receipt Date: 20161213
  Transmission Date: 20170207
  Serious: Yes (Other)
  Sender: FDA-Public Use
  Company Number: US-MALLINCKRODT-T201606253

PATIENT
  Sex: Female

DRUGS (1)
  1. ROXICODONE [Suspect]
     Active Substance: OXYCODONE HYDROCHLORIDE
     Indication: PRODUCT USED FOR UNKNOWN INDICATION
     Route: 065

REACTIONS (7)
  - Speech disorder [Unknown]
  - Drug effect increased [Unknown]
  - Confusional state [Unknown]
  - Hallucination [Unknown]
  - Pain [Unknown]
  - Metabolic disorder [Unknown]
  - Brain injury [Unknown]
